FAERS Safety Report 21626915 (Version 1)
Quarter: 2022Q4

REPORT INFORMATION
  Report Type: Spontaneous
  Country: LB (occurrence: LB)
  Receive Date: 20221122
  Receipt Date: 20221122
  Transmission Date: 20230113
  Serious: Yes (Other)
  Sender: FDA-Public Use
  Company Number: LB-STRIDES ARCOLAB LIMITED-2022SP015395

PATIENT
  Sex: Male

DRUGS (4)
  1. PREDNISOLONE [Suspect]
     Active Substance: PREDNISOLONE
     Indication: Acute lymphocytic leukaemia
     Dosage: UNK (MAINTENANCE CHEMOTHERAPY)
     Route: 065
  2. METHOTREXATE [Suspect]
     Active Substance: METHOTREXATE
     Indication: Acute lymphocytic leukaemia
     Dosage: UNK (MAINTENANCE CHEMOTHERAPY)
     Route: 065
  3. MERCAPTOPURINE [Suspect]
     Active Substance: MERCAPTOPURINE
     Indication: Acute lymphocytic leukaemia
     Dosage: UNK (MAINTENANCE CHEMOTHERAPY)
     Route: 065
  4. VINCRISTINE [Suspect]
     Active Substance: VINCRISTINE
     Indication: Acute lymphocytic leukaemia
     Dosage: UNK (MAINTENANCE CHEMOTHERAPY)
     Route: 065

REACTIONS (4)
  - Respiratory distress [Recovered/Resolved]
  - Pyrexia [Recovered/Resolved]
  - Cytomegalovirus infection reactivation [Recovered/Resolved]
  - Diarrhoea [Recovered/Resolved]
